FAERS Safety Report 15955670 (Version 3)
Quarter: 2019Q2

REPORT INFORMATION
  Report Type: Report from Study
  Country: JP (occurrence: JP)
  Receive Date: 20190213
  Receipt Date: 20190520
  Transmission Date: 20190711
  Serious: Yes (Life-Threatening, Hospitalization, Disabling, Other)
  Sender: FDA-Public Use
  Company Number: JP-GLAXOSMITHKLINE-JP2019JPN021387

PATIENT
  Age: 5 Decade
  Sex: Female
  Weight: 74 kg

DRUGS (8)
  1. BELIMUMAB SUBCUTANEOUS [Suspect]
     Active Substance: BELIMUMAB
     Indication: LUPUS NEPHRITIS
  2. NEORAL CAPSULES [Concomitant]
     Indication: SYSTEMIC LUPUS ERYTHEMATOSUS
     Dosage: 100 MG, UNK
  3. BELIMUMAB SUBCUTANEOUS [Suspect]
     Active Substance: BELIMUMAB
     Indication: SYSTEMIC LUPUS ERYTHEMATOSUS
     Dosage: 200 MG, WE
     Route: 058
     Dates: start: 20180801, end: 20181219
  4. NEORAL CAPSULES [Concomitant]
     Dosage: 150 MG, UNK
     Dates: start: 20190116, end: 20190305
  5. PREDONINE [Concomitant]
     Active Substance: PREDNISOLONE
     Indication: SYSTEMIC LUPUS ERYTHEMATOSUS
     Dosage: 10 MG, 1D
     Dates: start: 20180801
  6. NEORAL CAPSULES [Concomitant]
     Dosage: 125 MG, UNK
     Dates: start: 20190306, end: 20190402
  7. NEORAL CAPSULES [Concomitant]
     Dosage: 50 MG, UNK
     Dates: start: 20190403
  8. NEORAL CAPSULES [Concomitant]
     Indication: PROTEINURIA
     Dosage: 100 MG, UNK
     Dates: start: 20190104, end: 20190115

REACTIONS (3)
  - Lupus nephritis [Recovering/Resolving]
  - Systemic lupus erythematosus [Recovering/Resolving]
  - Proteinuria [Not Recovered/Not Resolved]

NARRATIVE: CASE EVENT DATE: 20180919
